FAERS Safety Report 9537204 (Version 1)
Quarter: 2013Q3

REPORT INFORMATION
  Report Type: Spontaneous
  Country: US (occurrence: None)
  Receive Date: 20130918
  Receipt Date: 20130918
  Transmission Date: 20140515
  Serious: Yes (Other)
  Sender: FDA-Public Use
  Company Number: None

PATIENT
  Age: 65 Year
  Sex: Female
  Weight: 46.27 kg

DRUGS (1)
  1. SENEXON [Suspect]
     Indication: ADHESION
     Dosage: 2 1/2 TABLESPOONS ONCE DAILY TAKEN BY MOUTH
     Route: 048
     Dates: start: 20130822, end: 20130830

REACTIONS (2)
  - Product substitution issue [None]
  - Drug effect decreased [None]
